FAERS Safety Report 9696810 (Version 2)
Quarter: 2013Q4

REPORT INFORMATION
  Report Type: Spontaneous
  Country: US (occurrence: US)
  Receive Date: 20131119
  Receipt Date: 20131122
  Transmission Date: 20140711
  Serious: No
  Sender: FDA-Public Use
  Company Number: US-GILEAD-2013-0087796

PATIENT
  Age: 75 Year
  Sex: Male

DRUGS (10)
  1. LETAIRIS [Suspect]
     Indication: PULMONARY ARTERIAL HYPERTENSION
     Dosage: 5 MG, QD
     Dates: start: 20131017
  2. LETAIRIS [Suspect]
     Dosage: 10 MG, QD
     Dates: start: 20131017
  3. LETAIRIS [Suspect]
     Dosage: 5 MG, QD
     Dates: end: 20131101
  4. HYDROCHLOROTHIAZIDE [Concomitant]
  5. HUMALOG [Concomitant]
  6. OMEPRAZOLE [Concomitant]
  7. LANTUS [Concomitant]
  8. CIALIS [Concomitant]
  9. ADCIRCA [Concomitant]
  10. ZETIA [Concomitant]

REACTIONS (3)
  - Nasal dryness [Recovered/Resolved]
  - Dry throat [Recovered/Resolved]
  - Oedema peripheral [Recovered/Resolved]
